FAERS Safety Report 4590328-7 (Version None)
Quarter: 2005Q1

REPORT INFORMATION
  Report Type: 
  Country: None (occurrence: None)
  Receive Date: 20050217
  Receipt Date: 20050210
  Transmission Date: 20050727
  Serious: Yes (Hospitalization)
  Sender: FDA-Public Use
  Company Number: TPA2005A00162

PATIENT
  Age: 52 Year
  Sex: Female
  Weight: 78.4723 kg

DRUGS (3)
  1. ACTOS [Suspect]
     Indication: DIABETES MELLITUS NON-INSULIN-DEPENDENT
     Dosage: 45 MG, 1 IN 1 D, PER ORAL
     Route: 048
     Dates: start: 20040801
  2. GLUCOPHAGE [Concomitant]
  3. GLYNASE [Concomitant]

REACTIONS (2)
  - BLOOD GLUCOSE INCREASED [None]
  - RENAL FAILURE [None]
